FAERS Safety Report 19471960 (Version 2)
Quarter: 2021Q3

REPORT INFORMATION
  Report Type: Spontaneous
  Country: AT (occurrence: AT)
  Receive Date: 20210629
  Receipt Date: 20210802
  Transmission Date: 20211014
  Serious: Yes (Hospitalization, Other)
  Sender: FDA-Public Use
  Company Number: AT-AKCEA THERAPEUTICS, INC.-2021IS001492

PATIENT
  Age: 62 Year
  Sex: Female
  Weight: 120.27 kg

DRUGS (9)
  1. LISINOPRIL HCT /01613901/ [Concomitant]
     Active Substance: HYDROCHLOROTHIAZIDE\LISINOPRIL
     Route: 048
  2. DAFLON /00426001/ [Concomitant]
     Active Substance: DIOSMIN
     Route: 048
  3. TEGSEDI [Suspect]
     Active Substance: INOTERSEN SODIUM
     Route: 065
  4. SINGULAIR [Concomitant]
     Active Substance: MONTELUKAST SODIUM
     Route: 065
  5. ISSD (INTEGRATED SYRINGE SAFETY DEVICE) [Suspect]
     Active Substance: DEVICE
  6. IXEL [Concomitant]
     Active Substance: MILNACIPRAN HYDROCHLORIDE
     Route: 065
  7. TEGSEDI [Suspect]
     Active Substance: INOTERSEN SODIUM
     Indication: HEREDITARY NEUROPATHIC AMYLOIDOSIS
     Route: 058
     Dates: start: 20201102, end: 20210601
  8. LASIX [Concomitant]
     Active Substance: FUROSEMIDE
     Route: 048
  9. SPIRONO [Concomitant]
     Route: 048

REACTIONS (17)
  - Vomiting [Recovered/Resolved]
  - Aspartate aminotransferase increased [Unknown]
  - Bundle branch block right [Unknown]
  - QRS axis abnormal [Unknown]
  - Nausea [Recovered/Resolved]
  - Blood pressure abnormal [Unknown]
  - Heart rate increased [Unknown]
  - Alanine aminotransferase increased [Unknown]
  - Pyrexia [Recovered/Resolved]
  - Headache [Unknown]
  - Oedema peripheral [Unknown]
  - C-reactive protein increased [Unknown]
  - Diarrhoea [Recovered/Resolved]
  - Electrocardiogram abnormal [Unknown]
  - Chills [Recovered/Resolved]
  - Gamma-glutamyltransferase increased [Unknown]
  - Infection [Unknown]

NARRATIVE: CASE EVENT DATE: 20210601
